FAERS Safety Report 8268875-6 (Version None)
Quarter: 2012Q1

REPORT INFORMATION
  Report Type: 
  Country: None (occurrence: None)
  Receive Date: 20120327
  Receipt Date: 20090428
  Transmission Date: 20120608
  Serious: Yes (Other)
  Sender: FDA-Public Use
  Company Number: PHHY2009US15786

PATIENT
  Age: 22 Year
  Sex: Male
  Weight: 102 kg

DRUGS (2)
  1. GLEEVEC [Suspect]
     Indication: CHRONIC MYELOID LEUKAEMIA
     Dosage: 400 MG,QD, ORAL, 400 MG/DAY, ORAL
     Route: 048
     Dates: start: 20020918, end: 20090409
  2. GLEEVEC [Suspect]
     Indication: CHRONIC MYELOID LEUKAEMIA
     Dosage: 400 MG,QD, ORAL, 400 MG/DAY, ORAL
     Route: 048
     Dates: start: 20050329

REACTIONS (3)
  - NEOPLASM MALIGNANT [None]
  - CHROMOSOME ANALYSIS ABNORMAL [None]
  - NEOPLASM PROGRESSION [None]
